FAERS Safety Report 13166957 (Version 1)
Quarter: 2017Q1

REPORT INFORMATION
  Report Type: Spontaneous
  Country: US (occurrence: US)
  Receive Date: 20170130
  Receipt Date: 20170130
  Transmission Date: 20170428
  Serious: No
  Sender: FDA-Public Use
  Company Number: None

PATIENT
  Age: 22 Year
  Sex: Male
  Weight: 91.8 kg

DRUGS (1)
  1. PEGINTRON [Suspect]
     Active Substance: PEGINTERFERON ALFA-2B
     Dates: end: 20170118

REACTIONS (9)
  - Fatigue [None]
  - Hyponatraemia [None]
  - Nervous system disorder [None]
  - Hypoglycaemia [None]
  - Hypotension [None]
  - Generalised tonic-clonic seizure [None]
  - Hypothermia [None]
  - Dizziness [None]
  - Urine output decreased [None]

NARRATIVE: CASE EVENT DATE: 20170119
